FAERS Safety Report 12346232 (Version 1)
Quarter: 2016Q2

REPORT INFORMATION
  Report Type: Spontaneous
  Country: US (occurrence: US)
  Receive Date: 20160509
  Receipt Date: 20160509
  Transmission Date: 20160815
  Serious: No
  Sender: FDA-Public Use
  Company Number: US-DRREDDYS-DRL/USA/16/0078610

PATIENT

DRUGS (1)
  1. ESZOPICLONE. [Suspect]
     Active Substance: ESZOPICLONE
     Indication: INSOMNIA
     Route: 065

REACTIONS (6)
  - Product quality issue [Unknown]
  - Restlessness [Unknown]
  - Psychomotor hyperactivity [Unknown]
  - Drug ineffective [Unknown]
  - Restless legs syndrome [Unknown]
  - Pruritus [Unknown]
